FAERS Safety Report 6109651-X (Version None)
Quarter: 2009Q1

REPORT INFORMATION
  Report Type: 
  Country: None (occurrence: None)
  Receive Date: 20090310
  Receipt Date: 20080207
  Transmission Date: 20090719
  Serious: No
  Sender: FDA-Public Use
  Company Number: A0705316A

PATIENT
  Age: 45 Year
  Sex: Female

DRUGS (1)
  1. NICORETTE [Suspect]

REACTIONS (8)
  - ANOREXIA [None]
  - DISCOMFORT [None]
  - GLOSSITIS [None]
  - MALAISE [None]
  - ORAL PAIN [None]
  - PRODUCT QUALITY ISSUE [None]
  - STOMATITIS [None]
  - THERMAL BURN [None]
